FAERS Safety Report 14992705 (Version 1)
Quarter: 2018Q2

REPORT INFORMATION
  Report Type: Spontaneous
  Country: US (occurrence: US)
  Receive Date: 20180609
  Receipt Date: 20180609
  Transmission Date: 20180711
  Serious: No
  Sender: FDA-Public Use
  Company Number: US-JNJFOC-20180531988

PATIENT
  Age: 26 Year
  Sex: Male
  Weight: 77.11 kg

DRUGS (2)
  1. MENS ROGAINE EXTRA STRENGTH [Suspect]
     Active Substance: MINOXIDIL
     Indication: ALOPECIA
     Dosage: 1 DROP
     Route: 061
     Dates: start: 2018, end: 2018
  2. MENS ROGAINE EXTRA STRENGTH [Suspect]
     Active Substance: MINOXIDIL
     Indication: ALOPECIA
     Dosage: 1 DROP
     Route: 061
     Dates: start: 2018, end: 2018

REACTIONS (4)
  - Eye pain [Recovered/Resolved]
  - Product use in unapproved indication [Unknown]
  - Product administered at inappropriate site [Unknown]
  - Skin wrinkling [Recovered/Resolved]

NARRATIVE: CASE EVENT DATE: 2018
